FAERS Safety Report 9563848 (Version 1)
Quarter: 2013Q3

REPORT INFORMATION
  Report Type: Spontaneous
  Country: US (occurrence: None)
  Receive Date: 20130926
  Receipt Date: 20130926
  Transmission Date: 20140515
  Serious: Yes (Disabling)
  Sender: FDA-Public Use
  Company Number: None

PATIENT
  Age: 34 Year
  Sex: Female
  Weight: 77.11 kg

DRUGS (1)
  1. MIRENA [Suspect]

REACTIONS (9)
  - Pelvic pain [None]
  - Back pain [None]
  - Arthralgia [None]
  - Feeling abnormal [None]
  - Disturbance in attention [None]
  - Mood swings [None]
  - Depression [None]
  - Suicidal ideation [None]
  - Loss of libido [None]
